FAERS Safety Report 19049798 (Version 1)
Quarter: 2021Q1

REPORT INFORMATION
  Report Type: Spontaneous
  Country: CN (occurrence: CN)
  Receive Date: 20210323
  Receipt Date: 20210323
  Transmission Date: 20210420
  Serious: Yes (Other)
  Sender: FDA-Public Use
  Company Number: CN-009507513-2103CHN005690

PATIENT
  Age: 6 Year
  Sex: Female
  Weight: 17 kg

DRUGS (3)
  1. TIENAM [Suspect]
     Active Substance: CILASTATIN SODIUM\IMIPENEM
     Indication: INFECTION
  2. SODIUM CHLORIDE. [Concomitant]
     Active Substance: SODIUM CHLORIDE
     Dosage: 100 MILLILITER
     Route: 041
     Dates: start: 20201127
  3. TIENAM [Suspect]
     Active Substance: CILASTATIN SODIUM\IMIPENEM
     Indication: OSTEOSARCOMA
     Dosage: 0.45 GRAM, Q8H
     Route: 041
     Dates: start: 20201127, end: 20201202

REACTIONS (10)
  - Nausea [Recovering/Resolving]
  - Asthenia [Recovering/Resolving]
  - Pyrexia [Recovering/Resolving]
  - Discomfort [Recovering/Resolving]
  - Incorrect dose administered [Unknown]
  - Inappropriate schedule of product administration [Unknown]
  - Fatigue [Recovering/Resolving]
  - Vomiting [Recovering/Resolving]
  - Neutrophil count decreased [Recovering/Resolving]
  - Epilepsy [Recovering/Resolving]

NARRATIVE: CASE EVENT DATE: 20201127
